FAERS Safety Report 23843732 (Version 2)
Quarter: 2024Q2

REPORT INFORMATION
  Report Type: Spontaneous
  Country: US (occurrence: US)
  Receive Date: 20240510
  Receipt Date: 20240612
  Transmission Date: 20240715
  Serious: No
  Sender: FDA-Public Use
  Company Number: US-PFIZER INC-202400102799

PATIENT
  Age: 14 Year
  Sex: Male
  Weight: 47.63 kg

DRUGS (1)
  1. GENOTROPIN [Suspect]
     Active Substance: SOMATROPIN
     Indication: Growth hormone deficiency
     Dosage: 2.4 MG, DAILY
     Route: 058
     Dates: start: 202401

REACTIONS (4)
  - Product dose omission issue [Not Recovered/Not Resolved]
  - Device issue [Unknown]
  - Device malfunction [Unknown]
  - Device breakage [Unknown]

NARRATIVE: CASE EVENT DATE: 20240506
